FAERS Safety Report 21216651 (Version 1)
Quarter: 2022Q3

REPORT INFORMATION
  Report Type: Spontaneous
  Country: RU (occurrence: None)
  Receive Date: 20220816
  Receipt Date: 20220816
  Transmission Date: 20221026
  Serious: Yes (Other)
  Sender: FDA-Public Use
  Company Number: RU-ROCHE-3156724

PATIENT

DRUGS (1)
  1. ATEZOLIZUMAB [Suspect]
     Active Substance: ATEZOLIZUMAB
     Indication: Small cell lung cancer
     Dosage: 5 CYCLES
     Route: 065

REACTIONS (5)
  - Lethargy [Unknown]
  - Haematotoxicity [Unknown]
  - Confusional state [Unknown]
  - Loss of consciousness [Unknown]
  - Delirium [Unknown]
